FAERS Safety Report 4872171-4 (Version None)
Quarter: 2006Q1

REPORT INFORMATION
  Report Type: 
  Country: None (occurrence: None)
  Receive Date: 20060103
  Receipt Date: 20051217
  Transmission Date: 20060701
  Serious: Yes (Death)
  Sender: FDA-Public Use
  Company Number: S05-PRT-05744-01

PATIENT
  Sex: Male

DRUGS (3)
  1. ESCITALOPRAM OXALATE [Suspect]
     Dates: start: 20051213, end: 20051217
  2. METHADONE [Suspect]
  3. ILLICIT DRUGS [Concomitant]

REACTIONS (2)
  - DRUG ABUSER [None]
  - DRUG INTERACTION [None]
